FAERS Safety Report 4916494-9 (Version None)
Quarter: 2006Q1

REPORT INFORMATION
  Report Type: 
  Country: None (occurrence: None)
  Receive Date: 20060220
  Receipt Date: 20060206
  Transmission Date: 20060701
  Serious: Yes (Death)
  Sender: FDA-Public Use
  Company Number: PHNU2006DE00817

PATIENT
  Age: 66 Year
  Sex: Male
  Weight: 79 kg

DRUGS (19)
  1. BUDES [Concomitant]
     Indication: CHRONIC OBSTRUCTIVE PULMONARY DISEASE
     Dosage: 200 UG, BID
     Dates: start: 20051020
  2. FORADIL [Suspect]
     Indication: CHRONIC OBSTRUCTIVE PULMONARY DISEASE
     Dosage: 1 DF, BID
     Dates: start: 20051020
  3. SALBUTAMOL [Concomitant]
     Indication: CHRONIC OBSTRUCTIVE PULMONARY DISEASE
     Dosage: 1 TO 2/DAY
     Route: 065
  4. VIANI [Concomitant]
     Indication: CHRONIC OBSTRUCTIVE PULMONARY DISEASE
     Dosage: 1 DF, QD
     Route: 065
     Dates: end: 20051020
  5. FOLIGAN [Concomitant]
     Dosage: UNKNOWN
     Route: 065
  6. DEKRISTOL [Concomitant]
     Dosage: UNKNOWN
     Route: 065
  7. PREDNISOLONE [Concomitant]
     Indication: HAEMODIALYSIS
     Dosage: 10 MG/DAY
     Route: 048
     Dates: start: 20040101
  8. DILATREND [Concomitant]
     Dosage: UNKNOWN
     Route: 065
  9. NEORECORMON [Concomitant]
     Dosage: UNKNOWN
     Route: 065
  10. SODIUM BICARBONATE [Concomitant]
     Dosage: UNKNOWN
     Route: 065
  11. DREISAVIT [Concomitant]
     Indication: HAEMODIALYSIS
     Dosage: UNKNOWN
     Route: 065
     Dates: start: 20040101
  12. BONDIOL [Concomitant]
     Dosage: UNKNOWN
     Route: 065
  13. UNAT [Concomitant]
     Indication: HAEMODIALYSIS
     Dosage: 200 MG/DAY
     Route: 048
     Dates: start: 20040101
  14. KARVEA [Concomitant]
     Indication: HAEMODIALYSIS
     Dosage: 150 MG/DAY
     Route: 048
     Dates: start: 20040101
  15. DIGITOXIN TAB [Concomitant]
     Indication: CARDIAC FAILURE
     Dosage: 0.07 MG/DAY
     Route: 048
     Dates: start: 20030101
  16. FALITHROM [Concomitant]
     Route: 065
     Dates: start: 20040101
  17. ALLOPURINOL [Concomitant]
     Dosage: UNKNOWN
     Route: 048
     Dates: start: 20030601
  18. THEOPHYLLINE [Concomitant]
     Indication: CHRONIC OBSTRUCTIVE PULMONARY DISEASE
     Dosage: 625 MG/DAY
     Route: 048
     Dates: start: 20030601
  19. CORANGIN - SLOW RELEASE [Concomitant]
     Indication: ATRIAL FIBRILLATION
     Dosage: 40 MG/DAY
     Route: 048
     Dates: start: 20030601

REACTIONS (3)
  - ANGINA PECTORIS [None]
  - MYOCARDIAL INFARCTION [None]
  - SUDDEN CARDIAC DEATH [None]
